FAERS Safety Report 9683836 (Version 2)
Quarter: 2013Q4

REPORT INFORMATION
  Report Type: Spontaneous
  Country: US (occurrence: US)
  Receive Date: 20131112
  Receipt Date: 20131114
  Transmission Date: 20140711
  Serious: No
  Sender: FDA-Public Use
  Company Number: US-TEVA-443615USA

PATIENT
  Age: 40 Year
  Sex: Female
  Weight: 95.79 kg

DRUGS (1)
  1. PARAGARD 380A [Suspect]
     Indication: CONTRACEPTION
     Dates: start: 200512, end: 20131107

REACTIONS (1)
  - Device breakage [Not Recovered/Not Resolved]
